FAERS Safety Report 8373730-7 (Version None)
Quarter: 2012Q2

REPORT INFORMATION
  Report Type: 
  Country: None (occurrence: None)
  Receive Date: 20120521
  Receipt Date: 20120516
  Transmission Date: 20120825
  Serious: Yes (Other)
  Sender: FDA-Public Use
  Company Number: US-ROCHE-1053695

PATIENT
  Sex: Male
  Weight: 93.07 kg

DRUGS (3)
  1. OXYCODONE HCL [Concomitant]
     Indication: BACK PAIN
     Route: 048
  2. VALIUM [Suspect]
     Indication: ANXIETY
     Route: 048
  3. OXYCONTIN [Concomitant]
     Indication: BACK PAIN
     Route: 048

REACTIONS (3)
  - INGUINAL HERNIA [None]
  - LIMB INJURY [None]
  - ROAD TRAFFIC ACCIDENT [None]
